FAERS Safety Report 6190027-4 (Version None)
Quarter: 2009Q2

REPORT INFORMATION
  Report Type: 
  Country: None (occurrence: None)
  Receive Date: 20090514
  Receipt Date: 20090505
  Transmission Date: 20091009
  Serious: Yes (Hospitalization, Other)
  Sender: FDA-Public Use
  Company Number: US-AVENTIS-200913944US

PATIENT
  Sex: Female
  Weight: 100.7 kg

DRUGS (13)
  1. KETEK [Suspect]
     Dosage: DOSE: UNK
     Dates: start: 20040830, end: 20040901
  2. KETEK [Suspect]
     Dosage: DOSE: UNK
     Dates: start: 20040830, end: 20040901
  3. KETEK [Suspect]
     Dosage: DOSE: UNK
     Dates: start: 20040830, end: 20040901
  4. PREDNISONE [Concomitant]
     Dates: start: 20040830
  5. ELIDEL [Concomitant]
     Dosage: DOSE: UNK
     Dates: start: 20040830, end: 20050901
  6. TEMOVATE [Concomitant]
     Dosage: DOSE: UNK
     Dates: start: 20040830, end: 20040901
  7. ZYRTEC [Concomitant]
     Dosage: DOSE: UNK
     Dates: start: 20040830, end: 20040901
  8. ATARAX [Concomitant]
     Dosage: DOSE: UNK
     Dates: start: 20040830, end: 20040901
  9. CALCIUM WITH VITAMIN D             /00944201/ [Concomitant]
     Dosage: DOSE: 600 MG-200
  10. GLUCOSAMINE [Concomitant]
     Dosage: DOSE: UNK
  11. MULTI-VITAMINS [Concomitant]
     Dosage: DOSE: UNK
  12. ASPIRIN [Concomitant]
  13. LOVAZA [Concomitant]
     Dosage: DOSE: UNK

REACTIONS (17)
  - ABDOMINAL PAIN [None]
  - ANOREXIA [None]
  - BLOOD BILIRUBIN INCREASED [None]
  - CHILLS [None]
  - CHROMATURIA [None]
  - DIARRHOEA [None]
  - FATIGUE [None]
  - FEELING HOT [None]
  - HEADACHE [None]
  - HEPATIC ENZYME INCREASED [None]
  - HEPATOTOXICITY [None]
  - JAUNDICE [None]
  - MALAISE [None]
  - NAUSEA [None]
  - PRURITUS GENERALISED [None]
  - PYREXIA [None]
  - VOMITING [None]
